FAERS Safety Report 10083451 (Version 1)
Quarter: 2014Q2

REPORT INFORMATION
  Report Type: Spontaneous
  Country: US (occurrence: None)
  Receive Date: 20140416
  Receipt Date: 20140416
  Transmission Date: 20141212
  Serious: No
  Sender: FDA-Public Use
  Company Number: None

PATIENT
  Age: 88 Year
  Sex: Female

DRUGS (1)
  1. LATANOPROST 0.005 % OPHTHALMIC SOLUTION [Suspect]
     Indication: GLAUCOMA
     Dosage: NOT USED, 1 DROP, QHS/BEDTIME, OPHTHALMIC
     Route: 047

REACTIONS (1)
  - Physical product label issue [None]
